FAERS Safety Report 7997246-2 (Version None)
Quarter: 2011Q4

REPORT INFORMATION
  Report Type: 
  Country: None (occurrence: None)
  Receive Date: 20111221
  Receipt Date: 20111214
  Transmission Date: 20120403
  Serious: Yes (Death, Other)
  Sender: FDA-Public Use
  Company Number: US-CELGENEUS-163-21880-11103148

PATIENT
  Sex: Male

DRUGS (10)
  1. REVLIMID [Suspect]
     Dosage: 10 MILLIGRAM
     Route: 048
     Dates: start: 20091112, end: 20111001
  2. CALCITRIOL [Concomitant]
     Route: 065
  3. METOPROLOL TARTRATE [Concomitant]
     Indication: HYPERTENSION
     Dosage: 25 MILLIGRAM
     Route: 065
     Dates: end: 20110101
  4. MAGNESIUM OXIDE [Concomitant]
     Dosage: 400 MILLIGRAM
     Route: 065
     Dates: end: 20110101
  5. CALCIUM +VIT D [Concomitant]
     Dosage: 500 MILLIGRAM
     Route: 065
     Dates: end: 20110101
  6. AMBIEN [Concomitant]
     Dosage: 10 MILLIGRAM
     Route: 065
     Dates: start: 20080101, end: 20110101
  7. POTASSIUM [Concomitant]
     Dosage: 20 MILLIEQUIVALENTS
     Route: 065
     Dates: end: 20110101
  8. LORAZEPAM [Concomitant]
     Indication: ANXIETY
     Dosage: 1 MILLIGRAM
     Route: 065
  9. CYMBALTA [Concomitant]
     Indication: ANTIDEPRESSANT THERAPY
     Dosage: 60 MILLIGRAM
     Route: 065
     Dates: start: 20100101, end: 20110101
  10. NEXIUM [Concomitant]
     Dosage: 40 MILLIGRAM
     Route: 065
     Dates: end: 20110101

REACTIONS (5)
  - DEEP VEIN THROMBOSIS [None]
  - CARDIAC FAILURE CONGESTIVE [None]
  - ATRIAL FIBRILLATION [None]
  - SEPSIS [None]
  - GASTROINTESTINAL HAEMORRHAGE [None]
